FAERS Safety Report 21508826 (Version 1)
Quarter: 2022Q4

REPORT INFORMATION
  Report Type: Spontaneous
  Country: US (occurrence: None)
  Receive Date: 20221026
  Receipt Date: 20221026
  Transmission Date: 20230113
  Serious: Yes (Other)
  Sender: FDA-Public Use
  Company Number: None

PATIENT
  Age: 74 Year
  Sex: Male
  Weight: 104 kg

DRUGS (5)
  1. AMIODARONE [Suspect]
     Active Substance: AMIODARONE
     Indication: Atrial fibrillation
     Dosage: OTHER FREQUENCY : CONTINUOUS DRIP?
     Route: 041
     Dates: start: 20221022, end: 20221022
  2. Cyanocobalamin 1,000 mcg tablet [Concomitant]
  3. Fluticasone 50 mcg/actuation nasal spray [Concomitant]
  4. Multivitamin tablet [Concomitant]
  5. Ibuprofen 200 mg tablet [Concomitant]

REACTIONS (1)
  - Bradycardia [None]

NARRATIVE: CASE EVENT DATE: 20221022
